FAERS Safety Report 16847807 (Version 1)
Quarter: 2019Q3

REPORT INFORMATION
  Report Type: Spontaneous
  Country: US (occurrence: US)
  Receive Date: 20190924
  Receipt Date: 20190924
  Transmission Date: 20191005
  Serious: No
  Sender: FDA-Public Use
  Company Number: US-ACORDA-ACO_160041_2019

PATIENT
  Sex: Female
  Weight: 68.93 kg

DRUGS (2)
  1. INBRIJA [Suspect]
     Active Substance: LEVODOPA
     Indication: ON AND OFF PHENOMENON
     Dosage: 42MG,  2 CAPSULES UP TO 5 TIMES PER DAY AS NEEDED
     Dates: start: 20190630
  2. INBRIJA [Suspect]
     Active Substance: LEVODOPA
     Indication: PARKINSON^S DISEASE

REACTIONS (2)
  - Cough [Recovered/Resolved]
  - Throat irritation [Not Recovered/Not Resolved]
